FAERS Safety Report 8065573-9 (Version None)
Quarter: 2012Q1

REPORT INFORMATION
  Report Type: 
  Country: None (occurrence: None)
  Receive Date: 20120124
  Receipt Date: 20120110
  Transmission Date: 20120608
  Serious: Yes (Other)
  Sender: FDA-Public Use
  Company Number: NL-MYLANLABS-2012S1000684

PATIENT
  Age: 58 Year
  Sex: Female
  Weight: 93 kg

DRUGS (1)
  1. METFORMIN HYDROCHLORIDE [Suspect]
     Indication: TYPE 2 DIABETES MELLITUS
     Dosage: 2 X DAAGS 500 MG
     Dates: start: 19981221, end: 20110801

REACTIONS (4)
  - NAUSEA [None]
  - FATIGUE [None]
  - PALPITATIONS [None]
  - DIABETES MELLITUS INADEQUATE CONTROL [None]
